FAERS Safety Report 25018658 (Version 1)
Quarter: 2025Q1

REPORT INFORMATION
  Report Type: Spontaneous
  Country: US (occurrence: US)
  Receive Date: 20250227
  Receipt Date: 20250227
  Transmission Date: 20250408
  Serious: No
  Sender: AVADEL CNS PHARMACEUTICALS, LLC
  Company Number: US-AVADEL CNS PHARMACEUTICALS, LLC-2024AVA02354

PATIENT
  Sex: Female

DRUGS (1)
  1. LUMRYZ [Suspect]
     Active Substance: SODIUM OXYBATE
     Indication: Narcolepsy
     Dosage: 9 G, ONCE NIGHTLY
     Route: 048
     Dates: start: 20241030, end: 2024

REACTIONS (3)
  - Initial insomnia [Recovering/Resolving]
  - Maternal exposure during pregnancy [Recovered/Resolved]
  - Paraesthesia [Recovered/Resolved]

NARRATIVE: CASE EVENT DATE: 20240101
